FAERS Safety Report 9138389 (Version 2)
Quarter: 2013Q1

REPORT INFORMATION
  Report Type: Spontaneous
  Country: US (occurrence: US)
  Receive Date: 20130305
  Receipt Date: 20130308
  Transmission Date: 20140127
  Serious: No
  Sender: FDA-Public Use
  Company Number: US-009507513-1303USA001311

PATIENT
  Sex: 0

DRUGS (2)
  1. IMPLANON [Suspect]
     Dosage: 1 ROD
     Route: 059
     Dates: start: 20130301, end: 20130301
  2. IMPLANON [Suspect]
     Dosage: 1 ROD
     Route: 059
     Dates: start: 20130301

REACTIONS (3)
  - Device difficult to use [Unknown]
  - Product quality issue [Unknown]
  - No adverse event [Unknown]
